FAERS Safety Report 8418584-5 (Version None)
Quarter: 2012Q2

REPORT INFORMATION
  Report Type: 
  Country: None (occurrence: None)
  Receive Date: 20120530
  Receipt Date: 20120515
  Transmission Date: 20120825
  Serious: Yes (Death)
  Sender: FDA-Public Use
  Company Number: DKLU1080886

PATIENT

DRUGS (3)
  1. ELSPAR [Suspect]
     Indication: ACUTE LYMPHOCYTIC LEUKAEMIA
  2. PREDNISONE TAB [Suspect]
     Indication: ACUTE LYMPHOCYTIC LEUKAEMIA
  3. VINCRISTINE [Suspect]
     Indication: ACUTE LYMPHOCYTIC LEUKAEMIA

REACTIONS (1)
  - TOXICITY TO VARIOUS AGENTS [None]
